FAERS Safety Report 24242083 (Version 1)
Quarter: 2024Q3

REPORT INFORMATION
  Report Type: Spontaneous
  Country: US (occurrence: US)
  Receive Date: 20240823
  Receipt Date: 20240823
  Transmission Date: 20241016
  Serious: Yes (Other)
  Sender: AUROBINDO
  Company Number: US-AUROBINDO-AUR-APL-2024-040940

PATIENT
  Age: 37 Year
  Sex: Male

DRUGS (11)
  1. VINCRISTINE SULFATE [Suspect]
     Active Substance: VINCRISTINE SULFATE
     Indication: Chronic myeloid leukaemia
     Dosage: UNK
     Route: 065
  2. METHOTREXATE [Suspect]
     Active Substance: METHOTREXATE
     Indication: Chronic myeloid leukaemia
     Dosage: UNK
     Route: 065
  3. RITUXIMAB [Suspect]
     Active Substance: RITUXIMAB
     Indication: Chronic myeloid leukaemia
     Dosage: UNK
     Route: 065
  4. PROCARBAZINE [Suspect]
     Active Substance: PROCARBAZINE
     Indication: Chronic myeloid leukaemia
     Dosage: UNK
     Route: 065
  5. NILOTINIB [Suspect]
     Active Substance: NILOTINIB
     Indication: Chronic myeloid leukaemia
     Dosage: UNK
     Route: 065
  6. PONATINIB [Suspect]
     Active Substance: PONATINIB
     Indication: Chronic myeloid leukaemia
     Dosage: UNK
     Route: 065
  7. CYTARABINE [Suspect]
     Active Substance: CYTARABINE
     Indication: Chronic myeloid leukaemia
     Dosage: UNK
     Route: 065
  8. BLINATUMOMAB [Suspect]
     Active Substance: BLINATUMOMAB
     Indication: Chronic myeloid leukaemia
     Dosage: UNK
     Route: 065
  9. DASATINIB [Concomitant]
     Active Substance: DASATINIB
     Indication: Chronic myeloid leukaemia
     Dosage: UNK
     Route: 065
  10. DEXAMETHASONE [Concomitant]
     Active Substance: DEXAMETHASONE
     Indication: Chronic myeloid leukaemia
     Dosage: UNK
     Route: 065
  11. CYCLOPHOSPHAMIDE [Concomitant]
     Active Substance: CYCLOPHOSPHAMIDE
     Indication: Chronic myeloid leukaemia
     Dosage: UNK
     Route: 065

REACTIONS (1)
  - Drug ineffective [Unknown]
